FAERS Safety Report 17762571 (Version 1)
Quarter: 2020Q2

REPORT INFORMATION
  Report Type: Report from Study
  Country: US (occurrence: US)
  Receive Date: 20200508
  Receipt Date: 20200508
  Transmission Date: 20200714
  Serious: Yes (Other)
  Sender: FDA-Public Use
  Company Number: US-BAYER-2020-074505

PATIENT

DRUGS (2)
  1. APIXABAN [Suspect]
     Active Substance: APIXABAN
  2. ASPIRIN. [Suspect]
     Active Substance: ASPIRIN

REACTIONS (2)
  - Vascular access site haemorrhage [None]
  - Drug interaction [None]
